FAERS Safety Report 25760036 (Version 1)
Quarter: 2025Q3

REPORT INFORMATION
  Report Type: Spontaneous
  Country: US (occurrence: US)
  Receive Date: 20250904
  Receipt Date: 20250904
  Transmission Date: 20251021
  Serious: Yes (Other)
  Sender: MYLAN
  Company Number: US-MYLANLABS-2025M1074469

PATIENT
  Age: 37 Day
  Sex: Male

DRUGS (5)
  1. PROPRANOLOL [Suspect]
     Active Substance: PROPRANOLOL HYDROCHLORIDE
     Indication: Accelerated idioventricular rhythm
     Dosage: 2 MILLIGRAM/KILOGRAM, QD
  2. PROPRANOLOL [Suspect]
     Active Substance: PROPRANOLOL HYDROCHLORIDE
     Dosage: 4 MILLIGRAM/KILOGRAM, QD
  3. IVABRADINE [Concomitant]
     Active Substance: IVABRADINE
     Indication: Accelerated idioventricular rhythm
  4. IVABRADINE [Concomitant]
     Active Substance: IVABRADINE
     Dosage: 0.05 MILLIGRAM/KILOGRAM, BID
  5. ADENOSINE [Concomitant]
     Active Substance: ADENOSINE
     Indication: Tachycardia

REACTIONS (1)
  - Treatment failure [Unknown]
